FAERS Safety Report 8607900-7 (Version None)
Quarter: 2012Q3

REPORT INFORMATION
  Report Type: 
  Country: None (occurrence: None)
  Receive Date: 20120821
  Receipt Date: 20110718
  Transmission Date: 20120928
  Serious: No
  Sender: FDA-Public Use
  Company Number: US-MYLANLABS-2011S1012794

PATIENT
  Age: 90 Year
  Sex: Male

DRUGS (4)
  1. NISOLDIPINE [Suspect]
     Dosage: 1 - 2 X DAILY
     Route: 048
     Dates: start: 20100714, end: 20101215
  2. METHYLDOPA [Concomitant]
     Dates: start: 20100908
  3. NISOLDIPINE [Suspect]
     Indication: HYPERTENSION
     Dates: start: 20100324
  4. NISOLDIPINE [Suspect]
     Route: 048
     Dates: start: 20101215

REACTIONS (2)
  - COUGH [None]
  - INCREASED UPPER AIRWAY SECRETION [None]
